FAERS Safety Report 8174984-2 (Version None)
Quarter: 2012Q1

REPORT INFORMATION
  Report Type: 
  Country: None (occurrence: None)
  Receive Date: 20120229
  Receipt Date: 20120220
  Transmission Date: 20120608
  Serious: Yes (Hospitalization, Other)
  Sender: FDA-Public Use
  Company Number: PHHY2012JP015908

PATIENT
  Sex: Male
  Weight: 61 kg

DRUGS (8)
  1. AFINITOR [Suspect]
     Dosage: 5 MG, DAILY
     Route: 048
     Dates: start: 20111101
  2. MICARDIS [Concomitant]
     Dosage: 40 MG, UNK
     Route: 048
  3. SODIUM BICARBONATE [Concomitant]
     Indication: PROPHYLAXIS
     Dosage: UNK
     Route: 048
  4. KENALOG [Concomitant]
     Indication: PROPHYLAXIS
     Dosage: UNK UKN, UNK
  5. AFINITOR [Suspect]
     Dosage: 10 MG, DAILY
     Route: 048
     Dates: start: 20111007, end: 20111031
  6. ADALAT CC [Concomitant]
     Dosage: 60 MG, UNK
     Route: 048
  7. AFINITOR [Suspect]
     Indication: METASTATIC RENAL CELL CARCINOMA
     Dosage: 10 MG, DAILY
     Route: 048
     Dates: start: 20110823, end: 20110826
  8. AFINITOR [Suspect]
     Dosage: 10 MG, DAILY
     Route: 048
     Dates: start: 20110903, end: 20110929

REACTIONS (2)
  - PNEUMONIA BACTERIAL [None]
  - C-REACTIVE PROTEIN INCREASED [None]
